FAERS Safety Report 7240394 (Version 2)
Quarter: 2013Q1

REPORT INFORMATION
  Report Type: Report from Study
  Country: DE (occurrence: DE)
  Receive Date: 20100108
  Receipt Date: 20130315
  Transmission Date: 20140127
  Serious: Yes (Death)
  Sender: FDA-Public Use
  Company Number: DE-ROCHE-675632

PATIENT
  Age: 41 Year
  Sex: Female
  Weight: 63.5 kg

DRUGS (4)
  1. CAPECITABINE [Suspect]
     Indication: BREAST CANCER
     Route: 048
  2. TAXOTERE [Suspect]
     Indication: BREAST CANCER
     Dosage: FIRST CYCLE
     Route: 042
  3. FORTECORTIN [Suspect]
     Indication: BREAST CANCER
     Route: 048
  4. PANTOPRAZOLE [Suspect]
     Indication: BREAST CANCER
     Route: 048

REACTIONS (4)
  - Neoplasm malignant [Fatal]
  - Sepsis [Fatal]
  - Hepatic failure [Fatal]
  - Cerebrovascular accident [Fatal]
